FAERS Safety Report 9511264 (Version 1)
Quarter: 2013Q3

REPORT INFORMATION
  Report Type: Spontaneous
  Country: US (occurrence: None)
  Receive Date: 20130906
  Receipt Date: 20130906
  Transmission Date: 20140515
  Serious: Yes (Hospitalization)
  Sender: FDA-Public Use
  Company Number: NSR_01240_2013

PATIENT
  Age: 53 Year
  Sex: Female

DRUGS (3)
  1. BACLOFEN [Suspect]
     Indication: MUSCLE SPASMS
     Dosage: ([CONTINUOUS INFUSION RECEIVED VIA A PUMP PRIOR TO REVISION SURGERY] DF, FOR UNKNOWN INTRATHECAL)
  2. BACLOFEN [Suspect]
     Indication: MUSCLE RIGIDITY
     Dosage: ([CONTINUOUS INFUSION RECEIVED VIA A PUMP PRIOR TO REVISION SURGERY] DF, FOR UNKNOWN INTRATHECAL)
  3. IMMUNE GLOBULIN [Suspect]

REACTIONS (6)
  - Hypertonia [None]
  - Muscular weakness [None]
  - Mental status changes [None]
  - Convulsion [None]
  - Pyrexia [None]
  - Blood creatine phosphokinase increased [None]
